FAERS Safety Report 4767985-5 (Version None)
Quarter: 2005Q3

REPORT INFORMATION
  Report Type: 
  Country: None (occurrence: None)
  Receive Date: 20050913
  Receipt Date: 20050901
  Transmission Date: 20060218
  Serious: Yes (Life-Threatening, Hospitalization)
  Sender: FDA-Public Use
  Company Number: 216926

PATIENT
  Age: 54 Year
  Sex: Female

DRUGS (8)
  1. HERCEPTIN [Suspect]
     Indication: BREAST CANCER METASTATIC
     Dosage: SEE IMAGE
     Route: 042
     Dates: start: 20040123, end: 20040123
  2. HERCEPTIN [Suspect]
     Indication: BREAST CANCER METASTATIC
     Dosage: SEE IMAGE
     Route: 042
     Dates: end: 20050728
  3. NAVELBINE [Concomitant]
  4. LEVAQUIN [Concomitant]
  5. AMOXICILLIN [Concomitant]
  6. CIPRO [Concomitant]
  7. PROTONIX [Concomitant]
  8. LISINOPRIL [Concomitant]

REACTIONS (5)
  - MALAISE [None]
  - NAUSEA [None]
  - PYREXIA [None]
  - RENAL FAILURE [None]
  - URINARY TRACT INFECTION [None]
